FAERS Safety Report 13608537 (Version 7)
Quarter: 2019Q1

REPORT INFORMATION
  Report Type: Report from Study
  Country: US (occurrence: US)
  Receive Date: 20170602
  Receipt Date: 20190227
  Transmission Date: 20190417
  Serious: Yes (Other)
  Sender: FDA-Public Use
  Company Number: PHEH2017US015957

PATIENT
  Sex: Female

DRUGS (2)
  1. AFINITOR [Suspect]
     Active Substance: EVEROLIMUS
     Dosage: 5 MG, (EVERY MONDAY,WEDNESDAY AND FRIDAY)
     Route: 048
  2. AFINITOR [Suspect]
     Active Substance: EVEROLIMUS
     Indication: ASTROCYTOMA, LOW GRADE
     Dosage: 5 MG, QD
     Route: 048
     Dates: start: 20140711

REACTIONS (13)
  - Nephrolithiasis [Unknown]
  - Renal cyst [Unknown]
  - Blood cholesterol increased [Unknown]
  - Temporomandibular joint syndrome [Unknown]
  - Vitamin D decreased [Unknown]
  - Inappropriate schedule of product administration [Unknown]
  - Malignant melanoma [Not Recovered/Not Resolved]
  - Stomatitis [Recovered/Resolved]
  - Bone pain [Unknown]
  - Melanocytic naevus [Unknown]
  - Infection [Unknown]
  - Blood sodium decreased [Recovered/Resolved]
  - Arthralgia [Unknown]
